FAERS Safety Report 14692542 (Version 3)
Quarter: 2018Q3

REPORT INFORMATION
  Report Type: Report from Study
  Country: CA (occurrence: CA)
  Receive Date: 20180329
  Receipt Date: 20180723
  Transmission Date: 20181010
  Serious: Yes (Hospitalization)
  Sender: FDA-Public Use
  Company Number: CA-BRISTOL-MYERS SQUIBB COMPANY-BMS-2018-027413

PATIENT
  Age: 76 Year
  Sex: Male

DRUGS (2)
  1. NIVOLUMAB [Suspect]
     Active Substance: NIVOLUMAB
     Indication: MALIGNANT MELANOMA
     Dosage: 100 MG, Q3WK
     Route: 042
     Dates: start: 20180308
  2. YERVOY [Suspect]
     Active Substance: IPILIMUMAB
     Indication: MALIGNANT MELANOMA
     Dosage: 300 MG, Q3WK
     Route: 042
     Dates: start: 20180308

REACTIONS (5)
  - Diarrhoea [Recovering/Resolving]
  - Fatigue [Not Recovered/Not Resolved]
  - Nausea [Recovering/Resolving]
  - Dizziness [Recovering/Resolving]
  - Vomiting [Recovering/Resolving]

NARRATIVE: CASE EVENT DATE: 20180312
